FAERS Safety Report 16988878 (Version 5)
Quarter: 2020Q1

REPORT INFORMATION
  Report Type: Spontaneous
  Country: HU (occurrence: HU)
  Receive Date: 20191104
  Receipt Date: 20200228
  Transmission Date: 20200409
  Serious: Yes (Other)
  Sender: FDA-Public Use
  Company Number: NVSC2019HU022415

PATIENT
  Age: 48 Year
  Sex: Female
  Weight: 50 kg

DRUGS (3)
  1. CARBAMAZEPINE. [Suspect]
     Active Substance: CARBAMAZEPINE
     Indication: TRIGEMINAL NEURALGIA
     Dosage: 700 MG
     Route: 048
     Dates: end: 20190319
  2. NOACID [Concomitant]
     Indication: ANTACID THERAPY
     Dosage: 20 MG, BID
     Route: 065
     Dates: start: 201903
  3. GILENYA [Suspect]
     Active Substance: FINGOLIMOD HYDROCHLORIDE
     Indication: MULTIPLE SCLEROSIS
     Dosage: 1 DF, QD
     Route: 048
     Dates: start: 20170621, end: 20190510

REACTIONS (9)
  - Hepatic failure [Unknown]
  - Lymphocyte count decreased [Recovered/Resolved]
  - Laboratory test abnormal [Unknown]
  - Pain [Unknown]
  - Muscle spasticity [Unknown]
  - Secondary progressive multiple sclerosis [Recovered/Resolved]
  - Depression [Unknown]
  - Trigeminal neuralgia [Unknown]
  - Multiple sclerosis [Unknown]

NARRATIVE: CASE EVENT DATE: 20190510
